FAERS Safety Report 9155549 (Version 1)
Quarter: 2013Q1

REPORT INFORMATION
  Report Type: Spontaneous
  Country: US (occurrence: US)
  Receive Date: 20130311
  Receipt Date: 20130311
  Transmission Date: 20140127
  Serious: Yes (Hospitalization)
  Sender: FDA-Public Use
  Company Number: US-GLAXOSMITHKLINE-A1014606A

PATIENT
  Age: 53 Year
  Sex: Female

DRUGS (13)
  1. ADVAIR [Suspect]
     Indication: CHRONIC OBSTRUCTIVE PULMONARY DISEASE
     Dosage: 1PUFF TWICE PER DAY
     Route: 055
  2. DUONEB [Suspect]
     Indication: CHRONIC OBSTRUCTIVE PULMONARY DISEASE
  3. LEVOTHYROXINE [Concomitant]
  4. OMEPRAZOLE [Concomitant]
  5. LOSARTAN [Concomitant]
  6. HYDROCHLOROTHIAZIDE [Concomitant]
  7. SIMVASTATIN [Concomitant]
  8. MONTELUKAST [Concomitant]
  9. MOTRIN [Concomitant]
  10. MULTIVITAMINS [Concomitant]
  11. NASONEX [Concomitant]
  12. VENTOLIN [Concomitant]
  13. PREDNISONE [Concomitant]

REACTIONS (3)
  - Glossodynia [Unknown]
  - Chronic obstructive pulmonary disease [Unknown]
  - Glossitis [Unknown]
